FAERS Safety Report 8980108 (Version 1)
Quarter: 2012Q4

REPORT INFORMATION
  Report Type: 
  Country: US (occurrence: US)
  Receive Date: 20121221
  Receipt Date: 20121221
  Transmission Date: 20130627
  Serious: Yes (Other)
  Sender: FDA-Public Use
  Company Number: CHPA2012US025396

PATIENT
  Age: 2 Year
  Sex: Male

DRUGS (1)
  1. TRIAMINIC FEVER REDUCER PAIN RELIEVER [Suspect]
     Indication: TEETHING
     Dosage: Unk, Unk
     Route: 048
     Dates: start: 2011

REACTIONS (3)
  - Conjunctivitis [Not Recovered/Not Resolved]
  - Off label use [Unknown]
  - Prescribed overdose [Unknown]
